FAERS Safety Report 8965349 (Version 2)
Quarter: 2013Q1

REPORT INFORMATION
  Report Type: Spontaneous
  Country: DE (occurrence: DE)
  Receive Date: 20121213
  Receipt Date: 20130205
  Transmission Date: 20140127
  Serious: Yes (Hospitalization, Other)
  Sender: FDA-Public Use
  Company Number: PHHY2012DE114172

PATIENT
  Sex: Female
  Weight: 58 kg

DRUGS (6)
  1. GILENYA [Suspect]
     Indication: RELAPSING-REMITTING MULTIPLE SCLEROSIS
     Dosage: 0.5 MG, QD
     Route: 048
     Dates: start: 201203
  2. FLUOXETINE [Concomitant]
     Dosage: 20 MG
  3. BETA BLOCKING AGENTS [Concomitant]
     Dosage: UNK UKN, UNK
     Dates: end: 2012
  4. CALCIMAGON D3 [Concomitant]
     Dosage: UNK UKN, UNK
     Route: 048
  5. L-THYROXIN [Concomitant]
     Indication: HYPOTHYROIDISM
     Dosage: 50 UG
     Route: 048
  6. TROSPIUM CHLORIDE [Concomitant]
     Indication: URINARY INCONTINENCE
     Dosage: 15 MG
     Route: 048

REACTIONS (4)
  - Glial scar [Unknown]
  - Convulsion [Recovered/Resolved]
  - Electrocardiogram QT prolonged [Recovered/Resolved]
  - Tachycardia [Recovered/Resolved]
